FAERS Safety Report 10400526 (Version 2)
Quarter: 2014Q4

REPORT INFORMATION
  Report Type: Spontaneous
  Country: US (occurrence: US)
  Receive Date: 20140821
  Receipt Date: 20141003
  Transmission Date: 20150528
  Serious: No
  Sender: FDA-Public Use
  Company Number: US-ASTRAZENECA-2013SE63700

PATIENT
  Age: 84 Year
  Sex: Male
  Weight: 136.1 kg

DRUGS (6)
  1. OXYGEN. [Concomitant]
     Active Substance: OXYGEN
     Indication: RESPIRATORY DISORDER
     Dosage: AS REQUIRED
  2. SYMBICORT [Suspect]
     Active Substance: BUDESONIDE\FORMOTEROL FUMARATE DIHYDRATE
     Indication: CHRONIC OBSTRUCTIVE PULMONARY DISEASE
     Dosage: 160/4.5, 2 PUFFS BID
     Route: 055
  3. SYMBICORT [Suspect]
     Active Substance: BUDESONIDE\FORMOTEROL FUMARATE DIHYDRATE
     Indication: CHRONIC OBSTRUCTIVE PULMONARY DISEASE
     Route: 055
  4. BENADRYL OVER THE COUNTER [Concomitant]
     Indication: RESPIRATORY DISORDER
     Dosage: 2 TO 3 TABS Q4H
     Route: 048
  5. NEBULIZER MACHINE [Concomitant]
     Indication: DYSPNOEA
     Dosage: PRN
     Route: 055
  6. VENTOLIN [Concomitant]
     Active Substance: ALBUTEROL SULFATE
     Indication: RESPIRATORY DISORDER
     Dosage: PRN
     Route: 055

REACTIONS (8)
  - Rash pruritic [Not Recovered/Not Resolved]
  - Drug ineffective [Not Recovered/Not Resolved]
  - Dyspnoea [Unknown]
  - Productive cough [Unknown]
  - Cough [Unknown]
  - Intentional product misuse [Unknown]
  - Swelling [Not Recovered/Not Resolved]
  - Acne [Not Recovered/Not Resolved]

NARRATIVE: CASE EVENT DATE: 2013
